FAERS Safety Report 7001062-8 (Version None)
Quarter: 2010Q3

REPORT INFORMATION
  Report Type: 
  Country: None (occurrence: None)
  Receive Date: 20100920
  Receipt Date: 20100910
  Transmission Date: 20110219
  Serious: Yes (Hospitalization)
  Sender: FDA-Public Use
  Company Number: BR-ASTRAZENECA-2010SE42962

PATIENT
  Age: 79 Year
  Sex: Female

DRUGS (5)
  1. ATENOLOL [Suspect]
     Indication: HYPERTENSION
     Route: 048
     Dates: start: 20010101, end: 20100901
  2. ATENOLOL [Suspect]
     Route: 048
  3. SEROQUEL [Suspect]
     Indication: DEPRESSION
     Dosage: 1/4 TABLET OD
     Route: 048
     Dates: start: 20090101
  4. FLUOXETINA [Concomitant]
     Indication: DEPRESSION
     Route: 048
     Dates: start: 20000101
  5. LEXOTAN [Concomitant]
     Indication: DEPRESSION
     Route: 048
     Dates: start: 20000101

REACTIONS (6)
  - BLOOD PRESSURE INADEQUATELY CONTROLLED [None]
  - DEHYDRATION [None]
  - DEPRESSION [None]
  - DRUG ADMINISTRATION ERROR [None]
  - DYSPHAGIA [None]
  - NASOPHARYNGITIS [None]
